FAERS Safety Report 10156923 (Version 1)
Quarter: 2014Q2

REPORT INFORMATION
  Report Type: Spontaneous
  Country: US (occurrence: US)
  Receive Date: 20140507
  Receipt Date: 20140507
  Transmission Date: 20141212
  Serious: No
  Sender: FDA-Public Use
  Company Number: US-BAYER-2014-061958

PATIENT
  Age: 52 Year
  Sex: Female

DRUGS (2)
  1. GADAVIST [Suspect]
     Dosage: 10 ML, ONCE
     Dates: start: 20140424, end: 20140424
  2. BENADRYL [Suspect]
     Dosage: UNK
     Route: 042

REACTIONS (3)
  - Urticaria [None]
  - Rash macular [None]
  - Wheezing [None]
